FAERS Safety Report 7250577-6 (Version None)
Quarter: 2011Q1

REPORT INFORMATION
  Report Type: 
  Country: None (occurrence: None)
  Receive Date: 20110128
  Receipt Date: 20110118
  Transmission Date: 20110831
  Serious: Yes (Life-Threatening)
  Sender: FDA-Public Use
  Company Number: CA-ROCHE-755346

PATIENT
  Age: 61 Year
  Sex: Male

DRUGS (2)
  1. AVASTIN [Suspect]
     Route: 042
  2. VECTIBIX [Suspect]
     Route: 065

REACTIONS (1)
  - DISEASE PROGRESSION [None]
